FAERS Safety Report 9801207 (Version 6)
Quarter: 2015Q4

REPORT INFORMATION
  Report Type: Spontaneous
  Country: US (occurrence: US)
  Receive Date: 20140107
  Receipt Date: 20151230
  Transmission Date: 20160305
  Serious: Yes (Hospitalization, Other)
  Sender: FDA-Public Use
  Company Number: US-PFIZER INC-2014002022

PATIENT
  Age: 67 Year
  Sex: Female
  Weight: 74 kg

DRUGS (23)
  1. LANTUS [Concomitant]
     Active Substance: INSULIN GLARGINE
     Dosage: 45 IU, 1X/DAY (NIGHTLY) (QHS)
     Route: 058
  2. TYLENOL [Concomitant]
     Active Substance: ACETAMINOPHEN
     Indication: PAIN
     Dosage: 500 MG, AS NEEDED
     Route: 048
  3. ASPIRIN E.C [Concomitant]
     Active Substance: ASPIRIN
     Dosage: 81 MG, DAILY, (TAKE WITH FOOD)
     Route: 048
  4. COREG [Concomitant]
     Active Substance: CARVEDILOL
     Dosage: 12.5 MG, 2X/DAY, (DAILY WITH MEALS)
     Route: 048
  5. LEXAPRO [Concomitant]
     Active Substance: ESCITALOPRAM OXALATE
     Dosage: 30 MG, DAILY
     Route: 048
  6. CELLCEPT [Concomitant]
     Active Substance: MYCOPHENOLATE MOFETIL\MYCOPHENOLATE MOFETIL HYDROCHLORIDE
     Dosage: 500 MG, 2X/DAY
     Route: 048
  7. PRILOSEC [Concomitant]
     Active Substance: OMEPRAZOLE MAGNESIUM
     Dosage: 40 MG, DAILY
     Route: 048
  8. RAPAMUNE [Suspect]
     Active Substance: SIROLIMUS
     Indication: HEART TRANSPLANT
     Dosage: 4 MG, 2X/DAY
     Dates: start: 20130521
  9. RAPAMUNE [Suspect]
     Active Substance: SIROLIMUS
     Indication: IMMUNOSUPPRESSION
     Dosage: 1 MG, DAILY
     Route: 048
  10. NOVOLOG [Concomitant]
     Active Substance: INSULIN ASPART
     Indication: HYPERGLYCAEMIA
     Dosage: 15 IU, 3X/DAY (INTO THE SKIN, BEFORE MEALS)
     Route: 058
  11. NOVOLOG [Concomitant]
     Active Substance: INSULIN ASPART
     Dosage: UNK, AS NEEDED (25-35 UNITS) (PRN AS DIRECTED)
     Route: 058
  12. ASCORBIC ACID WITH ROSE HIPS [Concomitant]
     Active Substance: ASCORBIC ACID
     Dosage: 1000 MG, 3X/DAY
     Route: 048
  13. ESTRACE [Concomitant]
     Active Substance: ESTRADIOL
     Dosage: 2 G, (3 TIMES A WEEK)
     Route: 067
  14. NOVOLOG [Concomitant]
     Active Substance: INSULIN ASPART
     Dosage: UNK, 3X/DAY (25-35 UNITS)
     Route: 058
  15. KLOR-CON [Concomitant]
     Active Substance: POTASSIUM CHLORIDE
     Dosage: 10 MEQ, DAILY
     Route: 048
  16. COUMADINE [Concomitant]
     Active Substance: WARFARIN SODIUM
     Dosage: 5 MG, DAILY
     Route: 048
  17. XANAX [Concomitant]
     Active Substance: ALPRAZOLAM
     Dosage: 1 MG, AS NEEDED
  18. FLONASE [Concomitant]
     Active Substance: FLUTICASONE PROPIONATE
     Dosage: UNK (50 MCG/ACTUATION NASAL SPRAY, 1 SPRAY)
     Route: 045
  19. ZAROXOLYN [Concomitant]
     Active Substance: METOLAZONE
     Dosage: 2.5 MG, DAILY (AS NEEDED)
     Route: 048
  20. K-DUR [Concomitant]
     Active Substance: POTASSIUM CHLORIDE
     Dosage: 10 MEQ, DAILY
     Route: 048
  21. CRESTOR [Concomitant]
     Active Substance: ROSUVASTATIN CALCIUM
     Dosage: 20 MG, DAILY
     Route: 048
  22. DEMADEX [Concomitant]
     Active Substance: TORSEMIDE
     Dosage: 20 MG, DAILY
     Route: 048
  23. COUMADINE [Concomitant]
     Active Substance: WARFARIN SODIUM
     Dosage: 2.5 MG, UNK (6 DAYS A WEEK AND 5 MG 1 DAY A WEEK)
     Route: 048

REACTIONS (5)
  - Fluid retention [Unknown]
  - Renal impairment [Unknown]
  - Cardiac failure congestive [Unknown]
  - Product use issue [Unknown]
  - Ophthalmic herpes zoster [Not Recovered/Not Resolved]

NARRATIVE: CASE EVENT DATE: 20130521
